FAERS Safety Report 5520460-2 (Version None)
Quarter: 2007Q4

REPORT INFORMATION
  Report Type: 
  Country: None (occurrence: None)
  Receive Date: 20071119
  Receipt Date: 20071112
  Transmission Date: 20080405
  Serious: Yes (Disabling)
  Sender: FDA-Public Use
  Company Number: PHNU2007SI03795

PATIENT
  Age: 68 Year
  Sex: Male

DRUGS (2)
  1. EXELON [Suspect]
     Indication: DEMENTIA
     Dosage: 4.5 MG/DAY
     Route: 048
     Dates: start: 20070417, end: 20070419
  2. EXELON [Suspect]
     Dosage: 1.5 MG, BID
     Route: 048
     Dates: start: 20070424

REACTIONS (2)
  - ABASIA [None]
  - SALIVARY HYPERSECRETION [None]
